FAERS Safety Report 8555577-1 (Version None)
Quarter: 2012Q3

REPORT INFORMATION
  Report Type: 
  Country: None (occurrence: None)
  Receive Date: 20120731
  Receipt Date: 20111025
  Transmission Date: 20120928
  Serious: Yes (Other)
  Sender: FDA-Public Use
  Company Number: US-ASTRAZENECA-2010SE44441

PATIENT
  Age: 55 Year
  Sex: Male
  Weight: 95.3 kg

DRUGS (8)
  1. SEROQUEL [Suspect]
     Route: 048
     Dates: start: 20100901
  2. SEROQUEL [Suspect]
     Indication: INSOMNIA
     Route: 048
     Dates: start: 20080101
  3. SEROQUEL [Suspect]
     Route: 048
     Dates: start: 20100901, end: 20100901
  4. SEROQUEL [Suspect]
     Route: 048
     Dates: start: 20100901
  5. VALIUM [Concomitant]
     Route: 065
  6. VIAGRA [Concomitant]
  7. SEROQUEL [Suspect]
     Indication: FLASHBACK
     Route: 048
     Dates: start: 20080101
  8. SEROQUEL [Suspect]
     Route: 048
     Dates: start: 20100901, end: 20100901

REACTIONS (16)
  - SUICIDAL IDEATION [None]
  - IMPATIENCE [None]
  - MEMORY IMPAIRMENT [None]
  - DRUG INEFFECTIVE [None]
  - BLOOD PRESSURE INCREASED [None]
  - MALAISE [None]
  - RESTLESSNESS [None]
  - EMOTIONAL DISTRESS [None]
  - ABNORMAL DREAMS [None]
  - AGITATION [None]
  - TACHYPHRENIA [None]
  - ERECTILE DYSFUNCTION [None]
  - INSOMNIA [None]
  - FEELING ABNORMAL [None]
  - INCORRECT DOSE ADMINISTERED [None]
  - DRUG DOSE OMISSION [None]
